FAERS Safety Report 16236261 (Version 1)
Quarter: 2019Q2

REPORT INFORMATION
  Report Type: Spontaneous
  Country: US (occurrence: US)
  Receive Date: 20190425
  Receipt Date: 20190425
  Transmission Date: 20190711
  Serious: No
  Sender: FDA-Public Use
  Company Number: US-DRREDDYS-USA/USA/19/0109695

PATIENT
  Age: 66 Year
  Sex: Female
  Weight: 67.59 kg

DRUGS (1)
  1. CIPROFLOXACIN. [Suspect]
     Active Substance: CIPROFLOXACIN
     Indication: URINARY TRACT INFECTION
     Route: 048

REACTIONS (8)
  - Pain in extremity [Recovering/Resolving]
  - Musculoskeletal stiffness [Recovering/Resolving]
  - Musculoskeletal chest pain [Recovering/Resolving]
  - Back pain [Recovering/Resolving]
  - Drug hypersensitivity [Recovering/Resolving]
  - Arthritis [Recovering/Resolving]
  - Pain in jaw [Recovering/Resolving]
  - Product quality issue [Unknown]

NARRATIVE: CASE EVENT DATE: 201811
